FAERS Safety Report 11162729 (Version 1)
Quarter: 2015Q2

REPORT INFORMATION
  Report Type: Spontaneous
  Country: IL (occurrence: None)
  Receive Date: 20150602
  Receipt Date: 20150602
  Transmission Date: 20150821
  Serious: Yes (Other)
  Sender: FDA-Public Use
  Company Number: FK201502540

PATIENT
  Age: 58 Year
  Sex: Female

DRUGS (8)
  1. LEUCOVORIN CALCIUM (MANUFACTURER UNKNOWN) (LEUCOVORIN CALCIUM) (LEUCOVORIN CALCIUM) [Suspect]
     Active Substance: LEUCOVORIN CALCIUM
     Indication: COLON CANCER
  2. OXALIPLATIN (OXALIPLATIN) (OXALIPLATIN) [Suspect]
     Active Substance: OXALIPLATIN
     Indication: COLON CANCER
  3. CETUXIMAB (CETUXIMAB) (CETUXIMAB) [Suspect]
     Active Substance: CETUXIMAB
     Indication: COLON CANCER
  4. FLUOROURACIL (MANUFACTURER UNKNOWN) (FLUOROURACIL) (FLUOROURACIL) [Suspect]
     Active Substance: FLUOROURACIL
     Indication: COLON CANCER
  5. CAPECITABINE  (CAPECITABINE) (CAPECITABINE) [Suspect]
     Active Substance: CAPECITABINE
     Indication: COLON CANCER
  6. BEVACIZUMAB (BEVACIZUMAB) (BEVACIZUMAB) [Concomitant]
     Active Substance: BEVACIZUMAB
     Indication: COLON CANCER
  7. MITOMYCIN (MITOMYCIN) (MITOMYCIN) [Suspect]
     Active Substance: MITOMYCIN
     Indication: COLON CANCER
  8. IRINOTECAN (IRINOTECAN) (IRINOTECAN) [Suspect]
     Active Substance: IRINOTECAN
     Indication: COLON CANCER

REACTIONS (8)
  - Decreased appetite [None]
  - Dyspnoea [None]
  - Fatigue [None]
  - Diarrhoea [None]
  - Neuropathy peripheral [None]
  - Mucosal inflammation [None]
  - Nausea [None]
  - Myalgia [None]
